FAERS Safety Report 9123738 (Version 1)
Quarter: 2013Q1

REPORT INFORMATION
  Report Type: Spontaneous
  Country: US (occurrence: US)
  Receive Date: 20130116
  Receipt Date: 20130116
  Transmission Date: 20140127
  Serious: Yes (Hospitalization)
  Sender: FDA-Public Use
  Company Number: US-BAYER-2013-004518

PATIENT
  Age: 36 Year
  Sex: Female
  Weight: 58.96 kg

DRUGS (3)
  1. YASMIN [Suspect]
  2. LORTAB [Concomitant]
  3. PREVACID [Concomitant]
     Dosage: 30 MG, UNK
     Route: 042

REACTIONS (3)
  - Deep vein thrombosis [Recovering/Resolving]
  - Pulmonary embolism [None]
  - Thrombophlebitis superficial [Recovered/Resolved]
